FAERS Safety Report 13127607 (Version 1)
Quarter: 2017Q1

REPORT INFORMATION
  Report Type: Report from Study
  Country: JP (occurrence: JP)
  Receive Date: 20170118
  Receipt Date: 20170118
  Transmission Date: 20170428
  Serious: Yes (Hospitalization)
  Sender: FDA-Public Use
  Company Number: JP-JNJFOC-20170114844

PATIENT
  Age: 85 Year
  Sex: Male
  Weight: 74.1 kg

DRUGS (7)
  1. XARELTO [Suspect]
     Active Substance: RIVAROXABAN
     Indication: CEREBROVASCULAR ACCIDENT PROPHYLAXIS
     Route: 048
     Dates: start: 20131224
  2. ARTIST [Concomitant]
     Active Substance: CARVEDILOL
     Route: 048
     Dates: start: 20150807
  3. AROTINOLOL HYDROCHLORIDE [Concomitant]
     Active Substance: AROTINOLOL HYDROCHLORIDE
     Route: 048
     Dates: end: 20150806
  4. ODRIC [Concomitant]
     Active Substance: TRANDOLAPRIL
     Route: 048
  5. XARELTO [Suspect]
     Active Substance: RIVAROXABAN
     Indication: THROMBOSIS PROPHYLAXIS
     Route: 048
     Dates: start: 20131224
  6. PROPIVERINE HYDROCHLORIDE [Concomitant]
     Active Substance: PROPIVERINE HYDROCHLORIDE
     Route: 048
  7. CALSLOT [Concomitant]
     Active Substance: MANIDIPINE HYDROCHLORIDE
     Route: 048

REACTIONS (4)
  - Abdominal pain lower [Recovered/Resolved]
  - Dementia Alzheimer^s type [Not Recovered/Not Resolved]
  - Chest discomfort [Recovering/Resolving]
  - Rib fracture [Recovering/Resolving]

NARRATIVE: CASE EVENT DATE: 201508
